FAERS Safety Report 21085769 (Version 1)
Quarter: 2022Q3

REPORT INFORMATION
  Report Type: Report from Study
  Country: DE (occurrence: DE)
  Receive Date: 20220715
  Receipt Date: 20220715
  Transmission Date: 20221026
  Serious: Yes (Hospitalization, Other)
  Sender: FDA-Public Use
  Company Number: DE-CELLTRION INC.-2022DE010845

PATIENT

DRUGS (11)
  1. RITUXIMAB [Suspect]
     Active Substance: RITUXIMAB
     Indication: Diffuse large B-cell lymphoma
     Dosage: 880 MILLIGRAM EVERY 1 DAY
     Dates: start: 20220323, end: 20220323
  2. RITUXIMAB [Suspect]
     Active Substance: RITUXIMAB
     Dosage: 890 MILLIGRAM EVERY 1 DAY
     Dates: start: 20220217
  3. ETOPOSIDE [Suspect]
     Active Substance: ETOPOSIDE
     Indication: Diffuse large B-cell lymphoma
     Dosage: 230 MILLIGRAM, EVERY 1 DAY
     Dates: start: 20220323, end: 20220325
  4. ETOPOSIDE [Suspect]
     Active Substance: ETOPOSIDE
     Dosage: 240 MILLIGRAM, EVERY 1 DAY
     Dates: start: 20220217
  5. POLATUZUMAB VEDOTIN [Suspect]
     Active Substance: POLATUZUMAB VEDOTIN
     Indication: Diffuse large B-cell lymphoma
     Dosage: 190 MILLIGRAM, EVERY 1 DAY
     Dates: start: 20220323, end: 20220323
  6. POLATUZUMAB VEDOTIN [Suspect]
     Active Substance: POLATUZUMAB VEDOTIN
     Dosage: 200 MILLIGRAM EVERY 1 DAY
     Dates: start: 20220217
  7. CARBOPLATIN [Suspect]
     Active Substance: CARBOPLATIN
     Indication: Diffuse large B-cell lymphoma
     Dosage: 800 MILLIGRAM, EVERY 1 DAY
     Dates: start: 20220218, end: 20220218
  8. CARBOPLATIN [Suspect]
     Active Substance: CARBOPLATIN
     Dosage: 800 MILLIGRAM, EVERY 1 DAY
     Dates: start: 20220324, end: 20220324
  9. IFOSFAMIDE [Suspect]
     Active Substance: IFOSFAMIDE
     Indication: Diffuse large B-cell lymphoma
     Dosage: 800 MILLIGRAM, EVERY 1 DAY
     Dates: start: 20220218
  10. IFOSFAMIDE [Suspect]
     Active Substance: IFOSFAMIDE
     Dosage: 720 MILLIGRAM, EVERY 1 DAY
     Dates: start: 20220324, end: 20220324
  11. TAMSULOSIN [Concomitant]
     Active Substance: TAMSULOSIN
     Dates: start: 2017

REACTIONS (3)
  - Pneumonia [Recovered/Resolved]
  - COVID-19 [Recovered/Resolved]
  - Off label use [Unknown]

NARRATIVE: CASE EVENT DATE: 20220222
